FAERS Safety Report 25537613 (Version 1)
Quarter: 2025Q3

REPORT INFORMATION
  Report Type: Spontaneous
  Country: CN (occurrence: CN)
  Receive Date: 20250710
  Receipt Date: 20250710
  Transmission Date: 20251020
  Serious: Yes (Hospitalization, Other)
  Sender: NEXUS PHARMACEUTICALS
  Company Number: CN-Nexus Pharma-000428

PATIENT
  Age: 67 Year
  Sex: Male

DRUGS (1)
  1. ERYTHROCIN LACTOBIONATE [Suspect]
     Active Substance: ERYTHROMYCIN LACTOBIONATE
     Indication: Emphysema

REACTIONS (1)
  - Pneumonia [Unknown]
